FAERS Safety Report 4768162-4 (Version None)
Quarter: 2005Q3

REPORT INFORMATION
  Report Type: 
  Country: None (occurrence: None)
  Receive Date: 20050912
  Receipt Date: 20050912
  Transmission Date: 20060218
  Serious: No
  Sender: FDA-Public Use
  Company Number: None

PATIENT
  Age: 44 Year
  Sex: Male

DRUGS (1)
  1. ASPIRIN [Suspect]
     Indication: CEREBROVASCULAR ACCIDENT
     Dosage: 325 MG PO DAILY
     Route: 048

REACTIONS (3)
  - HAEMATEMESIS [None]
  - MENTAL STATUS CHANGES [None]
  - VARICES OESOPHAGEAL [None]
